FAERS Safety Report 17890586 (Version 1)
Quarter: 2020Q2

REPORT INFORMATION
  Report Type: Spontaneous
  Country: KR (occurrence: KR)
  Receive Date: 20200612
  Receipt Date: 20200612
  Transmission Date: 20200714
  Serious: Yes (Other)
  Sender: FDA-Public Use
  Company Number: KR-BAYER-2020-107432

PATIENT
  Age: 62 Year
  Sex: Male

DRUGS (2)
  1. NEXAVAR [Suspect]
     Active Substance: SORAFENIB
     Indication: HEPATOCELLULAR CARCINOMA
     Dosage: 400-800 MG BID
     Route: 048
     Dates: start: 2014
  2. TEGAFUR [Concomitant]
     Active Substance: TEGAFUR

REACTIONS (1)
  - Metastases to adrenals [Recovered/Resolved]
